FAERS Safety Report 4869676-9 (Version None)
Quarter: 2005Q4

REPORT INFORMATION
  Report Type: 
  Country: None (occurrence: None)
  Receive Date: 20051223
  Receipt Date: 20051219
  Transmission Date: 20060501
  Serious: Yes (Hospitalization)
  Sender: FDA-Public Use
  Company Number: FRWYE246919DEC05

PATIENT
  Age: 87 Year
  Sex: Female

DRUGS (9)
  1. EFFEXOR [Suspect]
     Dosage: SEE IMAGE
     Route: 048
     Dates: end: 20051013
  2. EFFEXOR [Suspect]
     Dosage: SEE IMAGE
     Route: 048
     Dates: start: 20051014, end: 20051027
  3. EFFEXOR [Suspect]
     Dosage: SEE IMAGE
     Route: 048
     Dates: start: 20051028
  4. NEXIUM [Suspect]
     Dosage: 20 MG AND 40 MG DAILY
     Route: 048
     Dates: end: 20051027
  5. CORDARONE [Concomitant]
  6. NITRIDERM TTG (GLYCREYL TRINITRATE [Concomitant]
  7. METEOSPASMYL (ALVERINE CITRATE/DL-METHIONINE) [Concomitant]
  8. STILNOX (ZOLPIDEM) [Concomitant]
  9. FRAXIPARINE (HEPARIN-FRACTION, CALCIUM SALT) [Concomitant]

REACTIONS (8)
  - ANAEMIA [None]
  - CHOLESTASIS [None]
  - CLOSTRIDIUM DIFFICILE TOXIN TEST POSITIVE [None]
  - COLONIC PSEUDO-OBSTRUCTION [None]
  - CONFUSIONAL STATE [None]
  - HYPOKALAEMIA [None]
  - INFLAMMATION [None]
  - THROMBOCYTHAEMIA [None]
